FAERS Safety Report 9753906 (Version 1)
Quarter: 2013Q4

REPORT INFORMATION
  Report Type: Spontaneous
  Country: BR (occurrence: BR)
  Receive Date: 20131213
  Receipt Date: 20131213
  Transmission Date: 20140711
  Serious: Yes (Death, Other)
  Sender: FDA-Public Use
  Company Number: PHHY2013BR143587

PATIENT
  Age: 71 Year
  Sex: Male

DRUGS (3)
  1. CARBOPLATIN [Suspect]
     Indication: NEUROENDOCRINE CARCINOMA
  2. PEMETREXED [Suspect]
     Indication: NEUROENDOCRINE CARCINOMA
  3. BEVACIZUMAB [Suspect]
     Indication: NEUROENDOCRINE CARCINOMA

REACTIONS (3)
  - Death [Fatal]
  - Bone marrow toxicity [Unknown]
  - Drug effect incomplete [Unknown]
